FAERS Safety Report 15590239 (Version 33)
Quarter: 2024Q1

REPORT INFORMATION
  Report Type: Spontaneous
  Country: CA (occurrence: CA)
  Receive Date: 20181106
  Receipt Date: 20240321
  Transmission Date: 20240410
  Serious: Yes (Other)
  Sender: FDA-Public Use
  Company Number: CA-BAUSCH-BL-2018-030153

PATIENT
  Age: 58 Year
  Sex: Female

DRUGS (254)
  1. WELLBUTRIN XL [Suspect]
     Active Substance: BUPROPION HYDROCHLORIDE
     Indication: Product used for unknown indication
     Dosage: EXTENDED RELEASE TABLET, WELLBUTRIN
     Route: 065
  2. WELLBUTRIN XL [Suspect]
     Active Substance: BUPROPION HYDROCHLORIDE
     Dosage: EXTENDED RELEASE TABLET, WELLBUTRIN
     Route: 065
  3. WELLBUTRIN XL [Suspect]
     Active Substance: BUPROPION HYDROCHLORIDE
     Dosage: WELLBUTRIN
     Route: 065
  4. WELLBUTRIN XL [Suspect]
     Active Substance: BUPROPION HYDROCHLORIDE
     Dosage: WELLBUTRIN
     Route: 065
  5. WELLBUTRIN XL [Suspect]
     Active Substance: BUPROPION HYDROCHLORIDE
     Dosage: WELLBUTRIN
     Route: 065
  6. WELLBUTRIN XL [Suspect]
     Active Substance: BUPROPION HYDROCHLORIDE
     Dosage: EXTENDED RELEASE TABLET
     Route: 065
  7. WELLBUTRIN XL [Suspect]
     Active Substance: BUPROPION HYDROCHLORIDE
     Dosage: EXTENDED RELEASE TABLET
     Route: 065
  8. WELLBUTRIN XL [Suspect]
     Active Substance: BUPROPION HYDROCHLORIDE
     Dosage: WELLBUTRIN
     Route: 065
  9. BUPROPION [Suspect]
     Active Substance: BUPROPION
     Indication: Product used for unknown indication
     Dosage: EXTENDED RELEASE, BUPROPION HYDROCHLORIDE
     Route: 065
  10. BUPROPION [Suspect]
     Active Substance: BUPROPION
     Dosage: BUPROPION HYDROCHLORIDE
     Route: 065
  11. BUPROPION [Suspect]
     Active Substance: BUPROPION
     Dosage: BUPROPION HYDROCHLORIDE
     Route: 065
  12. BUPROPION [Suspect]
     Active Substance: BUPROPION
     Dosage: TABLET (EXTENDED-RELEASE), BUPROPION XL
     Route: 065
  13. BUPROPION [Suspect]
     Active Substance: BUPROPION
     Dosage: BUPROPION
     Route: 065
  14. BUPROPION [Suspect]
     Active Substance: BUPROPION
     Route: 065
  15. DICLOFENAC SODIUM [Suspect]
     Active Substance: DICLOFENAC\DICLOFENAC SODIUM
     Indication: Product used for unknown indication
     Route: 065
  16. VENLAFAXINE HYDROCHLORIDE [Suspect]
     Active Substance: VENLAFAXINE HYDROCHLORIDE
     Indication: Depression
     Route: 065
  17. VENLAFAXINE HYDROCHLORIDE [Suspect]
     Active Substance: VENLAFAXINE HYDROCHLORIDE
     Route: 065
  18. ALBUTEROL SULFATE [Suspect]
     Active Substance: ALBUTEROL SULFATE
     Indication: Product used for unknown indication
     Dosage: METERED DOSE(AEROSOL), INHALER
     Route: 065
  19. ALBUTEROL SULFATE [Suspect]
     Active Substance: ALBUTEROL SULFATE
     Route: 065
  20. ALBUTEROL SULFATE [Suspect]
     Active Substance: ALBUTEROL SULFATE
     Route: 065
  21. ALBUTEROL SULFATE [Suspect]
     Active Substance: ALBUTEROL SULFATE
     Dosage: AIROMIR, METERED DOSE(AEROSOL)
     Route: 065
  22. ALBUTEROL SULFATE [Suspect]
     Active Substance: ALBUTEROL SULFATE
     Route: 065
  23. ALBUTEROL SULFATE [Suspect]
     Active Substance: ALBUTEROL SULFATE
     Route: 065
  24. ALBUTEROL [Suspect]
     Active Substance: ALBUTEROL
     Indication: Product used for unknown indication
     Dosage: SALBUTAMOL
     Route: 065
  25. ALBUTEROL [Suspect]
     Active Substance: ALBUTEROL
     Dosage: SALBUTAMOL SULFATE
     Route: 065
  26. ALBUTEROL [Suspect]
     Active Substance: ALBUTEROL
     Dosage: ALBUTEROL
     Route: 065
  27. ACTEMRA [Suspect]
     Active Substance: TOCILIZUMAB
     Indication: Rheumatoid arthritis
     Route: 058
  28. ACTEMRA [Suspect]
     Active Substance: TOCILIZUMAB
     Dosage: NOT SPECIFIED
     Route: 058
  29. ACTEMRA [Suspect]
     Active Substance: TOCILIZUMAB
     Route: 058
  30. ACTEMRA [Suspect]
     Active Substance: TOCILIZUMAB
     Route: 058
  31. ACTEMRA [Suspect]
     Active Substance: TOCILIZUMAB
     Route: 058
  32. ACTEMRA [Suspect]
     Active Substance: TOCILIZUMAB
     Route: 058
  33. ACTEMRA [Suspect]
     Active Substance: TOCILIZUMAB
     Dosage: NOT SPECIFIED
     Route: 058
  34. ACTEMRA [Suspect]
     Active Substance: TOCILIZUMAB
     Route: 065
  35. ACTEMRA [Suspect]
     Active Substance: TOCILIZUMAB
     Route: 058
  36. ACTEMRA [Suspect]
     Active Substance: TOCILIZUMAB
     Route: 058
  37. ACTEMRA [Suspect]
     Active Substance: TOCILIZUMAB
     Route: 058
  38. ACTEMRA [Suspect]
     Active Substance: TOCILIZUMAB
     Route: 058
  39. ACTEMRA [Suspect]
     Active Substance: TOCILIZUMAB
     Route: 065
  40. ACTEMRA [Suspect]
     Active Substance: TOCILIZUMAB
     Route: 058
  41. ACTEMRA [Suspect]
     Active Substance: TOCILIZUMAB
     Route: 058
  42. ADVAIR HFA [Suspect]
     Active Substance: FLUTICASONE PROPIONATE\SALMETEROL XINAFOATE
     Indication: Product used for unknown indication
     Dosage: METERED DOSE AEROSOL
     Route: 065
  43. ADVAIR HFA [Suspect]
     Active Substance: FLUTICASONE PROPIONATE\SALMETEROL XINAFOATE
     Route: 065
  44. ADVAIR HFA [Suspect]
     Active Substance: FLUTICASONE PROPIONATE\SALMETEROL XINAFOATE
     Route: 065
  45. ADVAIR HFA [Suspect]
     Active Substance: FLUTICASONE PROPIONATE\SALMETEROL XINAFOATE
     Route: 065
  46. ADVAIR HFA [Suspect]
     Active Substance: FLUTICASONE PROPIONATE\SALMETEROL XINAFOATE
     Route: 065
  47. ADVAIR HFA [Suspect]
     Active Substance: FLUTICASONE PROPIONATE\SALMETEROL XINAFOATE
     Route: 065
  48. ADVAIR HFA [Suspect]
     Active Substance: FLUTICASONE PROPIONATE\SALMETEROL XINAFOATE
     Route: 065
  49. ADVAIR HFA [Suspect]
     Active Substance: FLUTICASONE PROPIONATE\SALMETEROL XINAFOATE
     Route: 065
  50. ADVAIR HFA [Suspect]
     Active Substance: FLUTICASONE PROPIONATE\SALMETEROL XINAFOATE
     Route: 065
  51. ADVAIR HFA [Suspect]
     Active Substance: FLUTICASONE PROPIONATE\SALMETEROL XINAFOATE
     Route: 065
  52. ADVAIR HFA [Suspect]
     Active Substance: FLUTICASONE PROPIONATE\SALMETEROL XINAFOATE
     Route: 065
  53. ADVAIR HFA [Suspect]
     Active Substance: FLUTICASONE PROPIONATE\SALMETEROL XINAFOATE
     Route: 065
  54. ADVAIR HFA [Suspect]
     Active Substance: FLUTICASONE PROPIONATE\SALMETEROL XINAFOATE
     Route: 065
  55. ADVAIR HFA [Suspect]
     Active Substance: FLUTICASONE PROPIONATE\SALMETEROL XINAFOATE
     Route: 065
  56. ADVAIR HFA [Suspect]
     Active Substance: FLUTICASONE PROPIONATE\SALMETEROL XINAFOATE
     Route: 065
  57. SODIUM PICOSULFATE [Suspect]
     Active Substance: SODIUM PICOSULFATE
     Indication: Product used for unknown indication
     Route: 065
  58. CYCLOBENZAPRINE [Suspect]
     Active Substance: CYCLOBENZAPRINE
     Indication: Eczema
     Dosage: CYCLOBENZAPRINE
     Route: 065
  59. CYCLOBENZAPRINE [Suspect]
     Active Substance: CYCLOBENZAPRINE
     Dosage: CYCLOBENZAPRINE HYDROCHLORIDE
     Route: 047
  60. CYCLOBENZAPRINE [Suspect]
     Active Substance: CYCLOBENZAPRINE
     Dosage: CYCLOBENZAPRINE
     Route: 047
  61. CYCLOBENZAPRINE [Suspect]
     Active Substance: CYCLOBENZAPRINE
     Dosage: CYCLOBENZAPRINE HYDROCHLORIDE
     Route: 065
  62. HYDROMORPHONE HYDROCHLORIDE [Suspect]
     Active Substance: HYDROMORPHONE HYDROCHLORIDE
     Indication: Product used for unknown indication
     Dosage: EXTENDED RELEASE
     Route: 065
  63. HYDROMORPHONE HYDROCHLORIDE [Suspect]
     Active Substance: HYDROMORPHONE HYDROCHLORIDE
     Route: 065
  64. HYDROMORPHONE HYDROCHLORIDE [Suspect]
     Active Substance: HYDROMORPHONE HYDROCHLORIDE
     Route: 065
  65. KETOPROFEN [Suspect]
     Active Substance: KETOPROFEN
     Indication: Product used for unknown indication
     Dosage: NOT SPECIFIED
     Route: 065
  66. NORTRIPTYLINE [Suspect]
     Active Substance: NORTRIPTYLINE
     Indication: Product used for unknown indication
     Dosage: APO-NORTRIPTYLINE - CAP 10MG
     Route: 065
  67. NORTRIPTYLINE [Suspect]
     Active Substance: NORTRIPTYLINE
     Dosage: NORTRIPTYLINE HYDROCHLORIDE
     Route: 065
  68. NORTRIPTYLINE [Suspect]
     Active Substance: NORTRIPTYLINE
     Dosage: NORTRIPTYLINE
     Route: 065
  69. NORTRIPTYLINE [Suspect]
     Active Substance: NORTRIPTYLINE
     Dosage: APO-NORTRIPTYLINE
     Route: 065
  70. NORTRIPTYLINE [Suspect]
     Active Substance: NORTRIPTYLINE
     Dosage: NORTRIPTYLINE
     Route: 065
  71. NORTRIPTYLINE [Suspect]
     Active Substance: NORTRIPTYLINE
     Dosage: NORTRIPTYLINE HYDROCHLORIDE
     Route: 065
  72. ORENCIA [Suspect]
     Active Substance: ABATACEPT
     Indication: Product used for unknown indication
     Route: 065
  73. ORENCIA [Suspect]
     Active Substance: ABATACEPT
     Route: 065
  74. ORENCIA [Suspect]
     Active Substance: ABATACEPT
     Route: 065
  75. ORENCIA [Suspect]
     Active Substance: ABATACEPT
     Route: 042
  76. ORENCIA [Suspect]
     Active Substance: ABATACEPT
     Route: 042
  77. PROMETRIUM [Suspect]
     Active Substance: PROGESTERONE
     Indication: Product used for unknown indication
     Route: 065
  78. RANITIDINE [Suspect]
     Active Substance: RANITIDINE
     Indication: Product used for unknown indication
     Dosage: RANITIDINE
     Route: 065
  79. RANITIDINE [Suspect]
     Active Substance: RANITIDINE
     Dosage: RANITIDINE
     Route: 065
  80. RANITIDINE [Suspect]
     Active Substance: RANITIDINE
     Dosage: RANITIDINE
     Route: 065
  81. RANITIDINE [Suspect]
     Active Substance: RANITIDINE
     Dosage: RANITIDINE HYDROCHLORIDE
     Route: 065
  82. RANITIDINE [Suspect]
     Active Substance: RANITIDINE
     Dosage: RANITIDINE HYDROCHLORIDE
     Route: 065
  83. RANITIDINE [Suspect]
     Active Substance: RANITIDINE
     Dosage: RANITIDINE HYDROCHLORIDE
     Route: 065
  84. CETIRIZINE HYDROCHLORIDE [Suspect]
     Active Substance: CETIRIZINE HYDROCHLORIDE
     Indication: Product used for unknown indication
     Route: 065
  85. CETIRIZINE HYDROCHLORIDE [Suspect]
     Active Substance: CETIRIZINE HYDROCHLORIDE
     Route: 065
  86. RESTORIL [Suspect]
     Active Substance: TEMAZEPAM
     Indication: Product used for unknown indication
     Route: 065
  87. SENNA LEAF [Suspect]
     Active Substance: SENNA LEAF
     Indication: Product used for unknown indication
     Route: 048
  88. SENNA LEAF [Suspect]
     Active Substance: SENNA LEAF
     Route: 048
  89. SENNA LEAF [Suspect]
     Active Substance: SENNA LEAF
     Route: 065
  90. SENNA LEAF [Suspect]
     Active Substance: SENNA LEAF
     Dosage: SENNA ALEXANDRINA
     Route: 048
  91. SENNA LEAF [Suspect]
     Active Substance: SENNA LEAF
     Dosage: SENNA
     Route: 065
  92. SENNA LEAF [Suspect]
     Active Substance: SENNA LEAF
     Dosage: SENNA ALEXANDRINA
     Route: 065
  93. SINGULAIR [Suspect]
     Active Substance: MONTELUKAST SODIUM
     Indication: Product used for unknown indication
     Dosage: NOT SPECIFIED
     Route: 065
  94. PANTOPRAZOLE MAGNESIUM [Suspect]
     Active Substance: PANTOPRAZOLE MAGNESIUM
     Indication: Product used for unknown indication
     Route: 065
  95. TYLENOL [Suspect]
     Active Substance: ACETAMINOPHEN
     Indication: Product used for unknown indication
     Route: 065
  96. CHLORMEZANONE [Suspect]
     Active Substance: CHLORMEZANONE
     Indication: Rheumatoid arthritis
     Route: 065
  97. CHLORMEZANONE [Suspect]
     Active Substance: CHLORMEZANONE
     Route: 065
  98. PROGESTERONE [Suspect]
     Active Substance: PROGESTERONE
     Indication: Product used for unknown indication
     Dosage: LIQUID INTRAMUSCULAR
     Route: 065
  99. PROGESTERONE [Suspect]
     Active Substance: PROGESTERONE
     Route: 030
  100. PROGESTERONE [Suspect]
     Active Substance: PROGESTERONE
     Route: 065
  101. PROGESTERONE [Suspect]
     Active Substance: PROGESTERONE
     Route: 065
  102. PROGESTERONE [Suspect]
     Active Substance: PROGESTERONE
     Route: 030
  103. PROGESTERONE [Suspect]
     Active Substance: PROGESTERONE
     Route: 065
  104. PROGESTERONE [Suspect]
     Active Substance: PROGESTERONE
     Route: 030
  105. PROGESTERONE [Suspect]
     Active Substance: PROGESTERONE
     Route: 058
  106. PROGESTERONE [Suspect]
     Active Substance: PROGESTERONE
     Route: 065
  107. RITUXAN [Suspect]
     Active Substance: RITUXIMAB
     Indication: Rheumatoid arthritis
     Route: 042
  108. RITUXAN [Suspect]
     Active Substance: RITUXIMAB
     Route: 042
  109. SENOKOT [Suspect]
     Active Substance: SENNOSIDES
     Indication: Product used for unknown indication
     Route: 065
  110. VENTOLIN [Suspect]
     Active Substance: ALBUTEROL SULFATE
     Indication: Product used for unknown indication
     Route: 065
  111. HERBALS\SENNA LEAF\SENNOSIDES [Suspect]
     Active Substance: HERBALS\SENNA LEAF\SENNOSIDES
     Indication: Product used for unknown indication
     Route: 065
  112. METHYLPREDNISOLONE [Suspect]
     Active Substance: METHYLPREDNISOLONE
     Indication: Product used for unknown indication
     Dosage: METHYLPREDNISOLONE
     Route: 065
  113. METHYLPREDNISOLONE [Suspect]
     Active Substance: METHYLPREDNISOLONE
     Dosage: METHYLPREDNISOLONE ACETATE
     Route: 065
  114. METHYLPREDNISOLONE [Suspect]
     Active Substance: METHYLPREDNISOLONE
     Dosage: METHYLPREDNISOLONE ACETATE
     Route: 065
  115. METHYLPREDNISOLONE [Suspect]
     Active Substance: METHYLPREDNISOLONE
     Dosage: METHYLPREDNISOLONE ACETATE
     Route: 065
  116. METHYLPREDNISOLONE [Suspect]
     Active Substance: METHYLPREDNISOLONE
     Dosage: METHYLPREDNISOLONE ACETATE
     Route: 065
  117. METHYLPREDNISOLONE [Suspect]
     Active Substance: METHYLPREDNISOLONE
     Dosage: METHYLPREDNISOLONE ACETATE
     Route: 065
  118. METHYLPREDNISOLONE [Suspect]
     Active Substance: METHYLPREDNISOLONE
     Dosage: METHYLPREDNISOLONE 21-DISODIUM PHOSPHATE
     Route: 065
  119. METHYLPREDNISOLONE [Suspect]
     Active Substance: METHYLPREDNISOLONE
     Dosage: METHYLPREDNISOLONE SODIUM SUCCINATE
     Route: 065
  120. METHYLPREDNISOLONE [Suspect]
     Active Substance: METHYLPREDNISOLONE
     Dosage: METHYLPREDNISOLONE SODIUM SUCCINATE
     Route: 065
  121. METHYLPREDNISOLONE [Suspect]
     Active Substance: METHYLPREDNISOLONE
     Dosage: METHYLPREDNISOLONE
     Route: 065
  122. METHYLPREDNISOLONE [Suspect]
     Active Substance: METHYLPREDNISOLONE
     Dosage: METHYLPREDNISOLONE
     Route: 065
  123. METHYLPREDNISOLONE [Suspect]
     Active Substance: METHYLPREDNISOLONE
     Dosage: METHYLPREDNISOLONE ACETATE
     Route: 065
  124. SERETIDE [Suspect]
     Active Substance: FLUTICASONE PROPIONATE\SALMETEROL XINAFOATE
     Indication: Product used for unknown indication
     Route: 065
  125. SERETIDE [Suspect]
     Active Substance: FLUTICASONE PROPIONATE\SALMETEROL XINAFOATE
     Route: 065
  126. SERETIDE [Suspect]
     Active Substance: FLUTICASONE PROPIONATE\SALMETEROL XINAFOATE
     Route: 065
  127. TEMAZEPAM [Suspect]
     Active Substance: TEMAZEPAM
     Indication: Product used for unknown indication
     Route: 065
  128. ACETAMINOPHEN [Suspect]
     Active Substance: ACETAMINOPHEN
     Indication: Product used for unknown indication
     Route: 065
  129. CATAPRES [Suspect]
     Active Substance: CLONIDINE HYDROCHLORIDE
     Indication: Product used for unknown indication
     Route: 065
  130. HYDROMORPHONE [Suspect]
     Active Substance: HYDROMORPHONE
     Indication: Product used for unknown indication
     Dosage: EXTENDED RELEASE TABLET
     Route: 065
  131. HYDROMORPHONE [Suspect]
     Active Substance: HYDROMORPHONE
     Dosage: HYDROMORPHONE
     Route: 065
  132. HYDROMORPHONE [Suspect]
     Active Substance: HYDROMORPHONE
     Dosage: HYDROMORPHONE HYDROCHLORIDE
     Route: 065
  133. HYDROMORPHONE [Suspect]
     Active Substance: HYDROMORPHONE
     Dosage: HYDROMORPHONE
     Route: 065
  134. HYDROMORPHONE [Suspect]
     Active Substance: HYDROMORPHONE
     Dosage: HYDROMORPHONE HYDROCHLORIDE
     Route: 065
  135. CRINONE [Suspect]
     Active Substance: PROGESTERONE
     Indication: Product used for unknown indication
     Route: 065
  136. PANTOPRAZOLE [Suspect]
     Active Substance: PANTOPRAZOLE
     Indication: Product used for unknown indication
     Dosage: PANTOPRAZOLE
     Route: 065
  137. PANTOPRAZOLE [Suspect]
     Active Substance: PANTOPRAZOLE
     Route: 065
  138. PANTOPRAZOLE [Suspect]
     Active Substance: PANTOPRAZOLE
     Route: 065
  139. PANTOPRAZOLE [Suspect]
     Active Substance: PANTOPRAZOLE
     Route: 065
  140. PANTOPRAZOLE [Suspect]
     Active Substance: PANTOPRAZOLE
     Dosage: PANTOPRAZOLE MAGNESIUM
     Route: 065
  141. PANTOPRAZOLE [Suspect]
     Active Substance: PANTOPRAZOLE
     Dosage: PANTOPRAZOLE MAGNESIUM
     Route: 065
  142. PANTOPRAZOLE [Suspect]
     Active Substance: PANTOPRAZOLE
     Dosage: ANHYDROUS PANTOPRAZOLE SODIUM
     Route: 065
  143. CETIRIZINE [Suspect]
     Active Substance: CETIRIZINE HYDROCHLORIDE
     Indication: Product used for unknown indication
     Dosage: CETIRIZINE
     Route: 065
  144. CETIRIZINE [Suspect]
     Active Substance: CETIRIZINE HYDROCHLORIDE
     Dosage: CETIRIZINE
     Route: 065
  145. CETIRIZINE [Suspect]
     Active Substance: CETIRIZINE HYDROCHLORIDE
     Dosage: CETIRIZINE
     Route: 065
  146. CETIRIZINE [Suspect]
     Active Substance: CETIRIZINE HYDROCHLORIDE
     Dosage: CETIRIZINE
     Route: 065
  147. CETIRIZINE [Suspect]
     Active Substance: CETIRIZINE HYDROCHLORIDE
     Dosage: CETIRIZINE HYDROCHLORIDE
     Route: 065
  148. CETIRIZINE [Suspect]
     Active Substance: CETIRIZINE HYDROCHLORIDE
     Dosage: CETIRIZINE HYDROCHLORIDE
     Route: 065
  149. CETIRIZINE [Suspect]
     Active Substance: CETIRIZINE HYDROCHLORIDE
     Dosage: CETIRIZINE HYDROCHLORIDE
     Route: 065
  150. DIPHENHYDRAMINE [Suspect]
     Active Substance: DIPHENHYDRAMINE
     Indication: Product used for unknown indication
     Dosage: DIPHENHYDRAMINE
     Route: 065
  151. DIPHENHYDRAMINE [Suspect]
     Active Substance: DIPHENHYDRAMINE
     Dosage: DIPHENHYDRAMINE HYDROCHLORIDE
     Route: 065
  152. DIPHENHYDRAMINE [Suspect]
     Active Substance: DIPHENHYDRAMINE
     Dosage: DIPHENHYDRAMINE
     Route: 065
  153. DIPHENHYDRAMINE [Suspect]
     Active Substance: DIPHENHYDRAMINE
     Dosage: DIPHENHYDRAMINE
     Route: 065
  154. DIPHENHYDRAMINE [Suspect]
     Active Substance: DIPHENHYDRAMINE
     Dosage: DIPHENHYDRAMINE
     Route: 065
  155. DIPHENHYDRAMINE [Suspect]
     Active Substance: DIPHENHYDRAMINE
     Dosage: DIPHENHYDRAMINE HYDROCHLORIDE
     Route: 065
  156. DIPHENHYDRAMINE [Suspect]
     Active Substance: DIPHENHYDRAMINE
     Dosage: DIPHENHYDRAMINE HYDROCHLORIDE
     Route: 065
  157. DIPHENHYDRAMINE [Suspect]
     Active Substance: DIPHENHYDRAMINE
     Dosage: DIPHENHYDRAMINE HYDROCHLORIDE
     Route: 065
  158. DIPHENHYDRAMINE [Suspect]
     Active Substance: DIPHENHYDRAMINE
     Dosage: DIPHENHYDRAMINE
     Route: 065
  159. DIPHENHYDRAMINE [Suspect]
     Active Substance: DIPHENHYDRAMINE
     Dosage: DIPHENHYDRAMINE
     Route: 065
  160. DIPHENHYDRAMINE [Suspect]
     Active Substance: DIPHENHYDRAMINE
     Dosage: DIPHENHYDRAMINE
     Route: 065
  161. SENNOSIDES [Suspect]
     Active Substance: SENNOSIDES
     Indication: Product used for unknown indication
     Dosage: SENNOSIDE [SENNOSIDE A+B]
     Route: 048
  162. SENNOSIDES [Suspect]
     Active Substance: SENNOSIDES
     Route: 065
  163. SENNOSIDES [Suspect]
     Active Substance: SENNOSIDES
     Route: 065
  164. SENNOSIDES [Suspect]
     Active Substance: SENNOSIDES
     Route: 065
  165. SENNOSIDES [Suspect]
     Active Substance: SENNOSIDES
     Route: 065
  166. RITUXIMAB [Suspect]
     Active Substance: RITUXIMAB
     Indication: Rheumatoid arthritis
     Route: 042
  167. RITUXIMAB [Suspect]
     Active Substance: RITUXIMAB
     Route: 042
  168. RITUXIMAB [Suspect]
     Active Substance: RITUXIMAB
     Route: 042
  169. RITUXIMAB [Suspect]
     Active Substance: RITUXIMAB
     Route: 042
  170. RITUXIMAB [Suspect]
     Active Substance: RITUXIMAB
     Route: 042
  171. RITUXIMAB [Suspect]
     Active Substance: RITUXIMAB
     Route: 042
  172. RITUXIMAB [Suspect]
     Active Substance: RITUXIMAB
     Dosage: HERBAL TEA
     Route: 042
  173. RITUXIMAB [Suspect]
     Active Substance: RITUXIMAB
     Route: 041
  174. TOCILIZUMAB [Suspect]
     Active Substance: TOCILIZUMAB
     Indication: Rheumatoid arthritis
     Route: 058
  175. TOCILIZUMAB [Suspect]
     Active Substance: TOCILIZUMAB
     Route: 058
  176. TOCILIZUMAB [Suspect]
     Active Substance: TOCILIZUMAB
     Route: 065
  177. TOCILIZUMAB [Suspect]
     Active Substance: TOCILIZUMAB
     Route: 058
  178. TOCILIZUMAB [Suspect]
     Active Substance: TOCILIZUMAB
     Route: 058
  179. CLONIDINE [Suspect]
     Active Substance: CLONIDINE
     Indication: Eczema
     Dosage: CLONIDINE
     Route: 065
  180. CLONIDINE [Suspect]
     Active Substance: CLONIDINE
     Dosage: CLONIDINE HYDROCHLORIDE
     Route: 065
  181. FLUTICASONE PROPIONATE\SALMETEROL XINAFOATE [Suspect]
     Active Substance: FLUTICASONE PROPIONATE\SALMETEROL XINAFOATE
     Indication: Rheumatoid arthritis
     Route: 065
  182. FLUTICASONE PROPIONATE\SALMETEROL XINAFOATE [Suspect]
     Active Substance: FLUTICASONE PROPIONATE\SALMETEROL XINAFOATE
     Route: 065
  183. FLUTICASONE PROPIONATE\SALMETEROL XINAFOATE [Suspect]
     Active Substance: FLUTICASONE PROPIONATE\SALMETEROL XINAFOATE
     Route: 065
  184. HUMIRA [Suspect]
     Active Substance: ADALIMUMAB
     Indication: Product used for unknown indication
     Dosage: SOLUTION SUBCUTANEOUS
     Route: 058
  185. HUMIRA [Suspect]
     Active Substance: ADALIMUMAB
     Route: 058
  186. HUMIRA [Suspect]
     Active Substance: ADALIMUMAB
     Dosage: POWDER FOR SOLUTION INTRAVENOUS
     Route: 042
  187. HUMIRA [Suspect]
     Active Substance: ADALIMUMAB
     Route: 058
  188. MORPHINE [Suspect]
     Active Substance: MORPHINE
     Indication: Product used for unknown indication
     Route: 058
  189. MORPHINE [Suspect]
     Active Substance: MORPHINE
     Route: 058
  190. MORPHINE [Suspect]
     Active Substance: MORPHINE
     Route: 065
  191. MORPHINE [Suspect]
     Active Substance: MORPHINE
     Dosage: MORPHINE SULFATE
     Route: 058
  192. MORPHINE [Suspect]
     Active Substance: MORPHINE
     Dosage: MORPHINE SULFATE
     Route: 065
  193. MOXIFLOXACIN HYDROCHLORIDE [Suspect]
     Active Substance: MOXIFLOXACIN HYDROCHLORIDE\MOXIFLOXACIN HYDROCHLORIDE MONOHYDRATE
     Indication: Product used for unknown indication
     Route: 058
  194. MOXIFLOXACIN HYDROCHLORIDE [Suspect]
     Active Substance: MOXIFLOXACIN HYDROCHLORIDE\MOXIFLOXACIN HYDROCHLORIDE MONOHYDRATE
     Route: 065
  195. REMICADE [Suspect]
     Active Substance: INFLIXIMAB
     Indication: Product used for unknown indication
     Dosage: POWDER FOR SOLUTION INTRAVENOUS
     Route: 042
  196. REMICADE [Suspect]
     Active Substance: INFLIXIMAB
     Route: 065
  197. REMICADE [Suspect]
     Active Substance: INFLIXIMAB
     Route: 042
  198. DEMEROL [Suspect]
     Active Substance: MEPERIDINE HYDROCHLORIDE
     Indication: Product used for unknown indication
     Dosage: NOT SPECIFIED
     Route: 065
  199. VITAMIN C [Suspect]
     Active Substance: ASCORBIC ACID
     Indication: Product used for unknown indication
     Route: 065
  200. VITAMIN C [Suspect]
     Active Substance: ASCORBIC ACID
     Route: 065
  201. VITAMIN C [Suspect]
     Active Substance: ASCORBIC ACID
     Route: 065
  202. VITAMIN C [Suspect]
     Active Substance: ASCORBIC ACID
     Dosage: ASCORBIC ACID
     Route: 065
  203. CITALOPRAM [Suspect]
     Active Substance: CITALOPRAM\CITALOPRAM HYDROBROMIDE
     Indication: Product used for unknown indication
     Dosage: CITALOPRAM
     Route: 065
  204. CITALOPRAM [Suspect]
     Active Substance: CITALOPRAM\CITALOPRAM HYDROBROMIDE
     Dosage: CITALOPRAM HYDROBROMIDE
     Route: 065
  205. CITALOPRAM [Suspect]
     Active Substance: CITALOPRAM\CITALOPRAM HYDROBROMIDE
     Dosage: CITALOPRAM HYDROBROMIDE
     Route: 065
  206. MONTELUKAST SODIUM [Suspect]
     Active Substance: MONTELUKAST SODIUM
     Indication: Product used for unknown indication
     Route: 058
  207. MONTELUKAST SODIUM [Suspect]
     Active Substance: MONTELUKAST SODIUM
     Route: 065
  208. CODEINE [Suspect]
     Active Substance: CODEINE
     Indication: Product used for unknown indication
     Route: 065
  209. PSYLLIUM HUSKS [Suspect]
     Active Substance: PSYLLIUM HUSK
     Indication: Product used for unknown indication
     Route: 065
  210. PSYLLIUM HUSKS [Suspect]
     Active Substance: PSYLLIUM HUSK
     Route: 065
  211. HERBALS\PLANTAGO OVATA LEAF [Suspect]
     Active Substance: HERBALS\PLANTAGO OVATA LEAF
     Indication: Product used for unknown indication
     Route: 065
  212. HERBALS\PLANTAGO OVATA LEAF [Suspect]
     Active Substance: HERBALS\PLANTAGO OVATA LEAF
     Route: 065
  213. ENBREL [Suspect]
     Active Substance: ETANERCEPT
     Indication: Rheumatoid arthritis
     Route: 065
  214. HERBALS\SENNOSIDES [Suspect]
     Active Substance: HERBALS\SENNOSIDES
     Indication: Product used for unknown indication
     Dosage: NATURTECH LABS, INC
     Route: 065
  215. ABACAVIR SULFATE [Suspect]
     Active Substance: ABACAVIR SULFATE
     Indication: Product used for unknown indication
     Route: 065
  216. ABACAVIR SULFATE\LAMIVUDINE [Suspect]
     Active Substance: ABACAVIR SULFATE\LAMIVUDINE
     Indication: Product used for unknown indication
     Route: 065
  217. ALPRAZOLAM [Suspect]
     Active Substance: ALPRAZOLAM
     Indication: Product used for unknown indication
     Route: 065
  218. FLOVENT [Suspect]
     Active Substance: FLUTICASONE PROPIONATE
     Indication: Product used for unknown indication
     Route: 065
  219. FLUCONAZOLE [Suspect]
     Active Substance: FLUCONAZOLE
     Indication: Product used for unknown indication
     Route: 065
  220. FUROSEMIDE [Suspect]
     Active Substance: FUROSEMIDE
     Indication: Product used for unknown indication
     Route: 065
  221. GABAPENTIN [Suspect]
     Active Substance: GABAPENTIN
     Indication: Product used for unknown indication
     Route: 065
  222. ONDANSETRON [Suspect]
     Active Substance: ONDANSETRON
     Indication: Product used for unknown indication
     Route: 065
  223. OXYCODONE AND ACETAMINOPHEN [Suspect]
     Active Substance: ACETAMINOPHEN\OXYCODONE HYDROCHLORIDE
     Indication: Product used for unknown indication
     Dosage: OXYCODONE HYDROCHLORIDE AND ACETAMINOPHEN
     Route: 065
  224. QUETIAPINE FUMARATE [Suspect]
     Active Substance: QUETIAPINE FUMARATE
     Indication: Product used for unknown indication
     Route: 065
  225. ZOPICLONE [Suspect]
     Active Substance: ZOPICLONE
     Indication: Product used for unknown indication
     Route: 065
  226. VENLAFAXINE HYDROCHLORIDE [Suspect]
     Active Substance: VENLAFAXINE HYDROCHLORIDE
     Indication: Product used for unknown indication
     Dosage: INTRACARDIAC
     Route: 016
  227. OXYCODONE [Suspect]
     Active Substance: OXYCODONE\OXYCODONE HYDROCHLORIDE
     Indication: Product used for unknown indication
     Route: 065
  228. ACETAMINOPHEN\OXYCODONE HYDROCHLORIDE [Suspect]
     Active Substance: ACETAMINOPHEN\OXYCODONE HYDROCHLORIDE
     Indication: Product used for unknown indication
     Route: 065
  229. TRIUMEQ [Suspect]
     Active Substance: ABACAVIR SULFATE\DOLUTEGRAVIR SODIUM\LAMIVUDINE
     Indication: Product used for unknown indication
     Route: 065
  230. ABACAVIR SULFATE\DOLUTEGRAVIR SODIUM\LAMIVUDINE [Suspect]
     Active Substance: ABACAVIR SULFATE\DOLUTEGRAVIR SODIUM\LAMIVUDINE
     Indication: Product used for unknown indication
     Route: 065
  231. ACETAMINOPHEN AND CODEINE [Suspect]
     Active Substance: ACETAMINOPHEN\CODEINE PHOSPHATE
     Indication: Product used for unknown indication
     Route: 065
  232. TIVICAY [Suspect]
     Active Substance: DOLUTEGRAVIR SODIUM
     Indication: Product used for unknown indication
     Route: 065
  233. FLUTICASONE [Suspect]
     Active Substance: FLUTICASONE
     Indication: Product used for unknown indication
     Route: 065
  234. FLUTICASONE [Suspect]
     Active Substance: FLUTICASONE
     Dosage: FLUTICASONE PROPIONATE
     Route: 065
  235. FLUTICASONE [Suspect]
     Active Substance: FLUTICASONE
     Dosage: FLUTICASONE PROPIONATE
     Route: 065
  236. FLUTICASONE [Suspect]
     Active Substance: FLUTICASONE
     Dosage: FLUTICASONE PROPIONATE
     Route: 065
  237. DICLOFENAC SODIUM [Suspect]
     Active Substance: DICLOFENAC\DICLOFENAC SODIUM
     Indication: Product used for unknown indication
     Dosage: APO DICLO
     Route: 065
  238. LAMIVUDINE [Suspect]
     Active Substance: LAMIVUDINE
     Indication: Product used for unknown indication
     Route: 065
  239. NORTRIPTYLINE [Suspect]
     Active Substance: NORTRIPTYLINE
     Indication: Product used for unknown indication
     Route: 065
  240. VITAMIN C [Concomitant]
     Active Substance: ASCORBIC ACID
     Indication: Product used for unknown indication
     Route: 065
  241. VITAMIN C [Concomitant]
     Active Substance: ASCORBIC ACID
     Dosage: ASCORBIC ACID
     Route: 065
  242. VITAMIN C [Concomitant]
     Active Substance: ASCORBIC ACID
     Dosage: ASCORBIC ACID
     Route: 065
  243. VITAMIN C [Concomitant]
     Active Substance: ASCORBIC ACID
     Route: 065
  244. LYRICA [Concomitant]
     Active Substance: PREGABALIN
     Indication: Pain
     Route: 065
  245. LYRICA [Concomitant]
     Active Substance: PREGABALIN
     Indication: Herpes zoster
  246. XELJANZ [Concomitant]
     Active Substance: TOFACITINIB CITRATE
     Indication: Rheumatoid arthritis
     Route: 048
  247. XELJANZ [Concomitant]
     Active Substance: TOFACITINIB CITRATE
     Indication: Herpes zoster
     Route: 048
  248. XELJANZ [Concomitant]
     Active Substance: TOFACITINIB CITRATE
     Route: 048
  249. XELJANZ [Concomitant]
     Active Substance: TOFACITINIB CITRATE
     Route: 048
  250. XELJANZ [Concomitant]
     Active Substance: TOFACITINIB CITRATE
     Route: 048
  251. XELJANZ [Concomitant]
     Active Substance: TOFACITINIB CITRATE
     Route: 048
  252. ENBREL [Concomitant]
     Active Substance: ETANERCEPT
     Indication: Rheumatoid arthritis
  253. DOLUTEGRAVIR [Concomitant]
     Active Substance: DOLUTEGRAVIR
     Indication: Rheumatoid arthritis
     Dosage: DOLUTEGRAVIR
     Route: 065
  254. DOLUTEGRAVIR [Concomitant]
     Active Substance: DOLUTEGRAVIR
     Dosage: DOLUTEGRAVIR SODIUM
     Route: 065

REACTIONS (40)
  - Temperature regulation disorder [Not Recovered/Not Resolved]
  - Coeliac disease [Not Recovered/Not Resolved]
  - Immunodeficiency [Not Recovered/Not Resolved]
  - Food allergy [Not Recovered/Not Resolved]
  - Erythema [Not Recovered/Not Resolved]
  - Fluid retention [Not Recovered/Not Resolved]
  - Foetal death [Not Recovered/Not Resolved]
  - Drug intolerance [Not Recovered/Not Resolved]
  - Decreased immune responsiveness [Not Recovered/Not Resolved]
  - Infusion related reaction [Not Recovered/Not Resolved]
  - Joint swelling [Not Recovered/Not Resolved]
  - Rheumatoid arthritis [Not Recovered/Not Resolved]
  - Psoriasis [Not Recovered/Not Resolved]
  - Bursitis [Not Recovered/Not Resolved]
  - Back pain [Not Recovered/Not Resolved]
  - Pain [Not Recovered/Not Resolved]
  - Asthma [Not Recovered/Not Resolved]
  - Upper respiratory tract infection [Not Recovered/Not Resolved]
  - Hyperhidrosis [Not Recovered/Not Resolved]
  - Constipation [Not Recovered/Not Resolved]
  - Fatigue [Not Recovered/Not Resolved]
  - Headache [Not Recovered/Not Resolved]
  - Hypersensitivity [Not Recovered/Not Resolved]
  - Drug hypersensitivity [Not Recovered/Not Resolved]
  - Rash erythematous [Not Recovered/Not Resolved]
  - Hepatic enzyme increased [Not Recovered/Not Resolved]
  - Pyrexia [Not Recovered/Not Resolved]
  - Rash [Not Recovered/Not Resolved]
  - Hypertension [Not Recovered/Not Resolved]
  - Thrombocytopenia [Not Recovered/Not Resolved]
  - Infection [Not Recovered/Not Resolved]
  - Treatment failure [Not Recovered/Not Resolved]
  - Drug ineffective [Not Recovered/Not Resolved]
  - Overdose [Not Recovered/Not Resolved]
  - Prescribed overdose [Not Recovered/Not Resolved]
  - Off label use [Not Recovered/Not Resolved]
  - Contraindicated product administered [Not Recovered/Not Resolved]
  - Product use issue [Not Recovered/Not Resolved]
  - Intentional product misuse [Not Recovered/Not Resolved]
  - Exposure during pregnancy [Not Recovered/Not Resolved]
